FAERS Safety Report 5848632-8 (Version None)
Quarter: 2008Q3

REPORT INFORMATION
  Report Type: 
  Country: None (occurrence: None)
  Receive Date: 20080818
  Receipt Date: 20080808
  Transmission Date: 20090109
  Serious: Yes (Other)
  Sender: FDA-Public Use
  Company Number: US-TEVA-175688USA

PATIENT

DRUGS (1)
  1. AZILECT [Suspect]
     Route: 048
     Dates: end: 20080101

REACTIONS (1)
  - RESPIRATORY ARREST [None]
